FAERS Safety Report 7553322-X (Version None)
Quarter: 2011Q2

REPORT INFORMATION
  Report Type: 
  Country: None (occurrence: None)
  Receive Date: 20110617
  Receipt Date: 20110610
  Transmission Date: 20111010
  Serious: No
  Sender: FDA-Public Use
  Company Number: US-BIOGENIDEC-2011BI021655

PATIENT
  Age: 51 Year
  Sex: Female

DRUGS (3)
  1. TYSABRI [Suspect]
     Indication: MULTIPLE SCLEROSIS
     Route: 042
     Dates: start: 20090505
  2. AVONEX [Concomitant]
     Indication: MULTIPLE SCLEROSIS
     Route: 030
     Dates: start: 19970401
  3. AVONEX [Concomitant]
     Route: 030

REACTIONS (4)
  - NASOPHARYNGITIS [None]
  - FALL [None]
  - MEMORY IMPAIRMENT [None]
  - MUSCULOSKELETAL STIFFNESS [None]
